FAERS Safety Report 9184349 (Version 1)
Quarter: 2012Q4

REPORT INFORMATION
  Report Type: 
  Country: US (occurrence: US)
  Receive Date: 20121101
  Receipt Date: 20121101
  Transmission Date: 20130627
  Serious: No
  Sender: FDA-Public Use
  Company Number: US-PFIZER INC-2012272408

PATIENT
  Age: 80 Year
  Sex: Female

DRUGS (1)
  1. CHANTIX [Suspect]
     Indication: SMOKING CESSATION THERAPY
     Dosage: UNK, 2x/day
     Route: 048
     Dates: start: 20121026

REACTIONS (2)
  - Incorrect dose administered [Unknown]
  - Insomnia [Not Recovered/Not Resolved]
